FAERS Safety Report 7701569-1 (Version None)
Quarter: 2011Q3

REPORT INFORMATION
  Report Type: 
  Country: None (occurrence: None)
  Receive Date: 20110819
  Receipt Date: 20110819
  Transmission Date: 20111222
  Serious: Yes (Other)
  Sender: FDA-Public Use
  Company Number: None

PATIENT
  Age: 52 Year
  Sex: Male
  Weight: 140.1615 kg

DRUGS (5)
  1. FINASTERIDE [Suspect]
     Indication: BENIGN PROSTATIC HYPERPLASIA
     Dosage: 5MG PO DAILY
     Route: 048
     Dates: start: 20110326, end: 20110426
  2. FINASTERIDE [Suspect]
     Indication: BENIGN PROSTATIC HYPERPLASIA
     Dosage: 5MG PO DAILY
     Route: 048
     Dates: start: 20110426
  3. FINASTERIDE [Suspect]
     Indication: BENIGN PROSTATIC HYPERPLASIA
     Dosage: 5MG PO DAILY
     Route: 048
     Dates: start: 20110526
  4. FINASTERIDE [Suspect]
     Indication: BENIGN PROSTATIC HYPERPLASIA
     Dosage: 5MG PO DAILY
     Route: 048
     Dates: start: 20110128, end: 20110224
  5. FINASTERIDE [Suspect]
     Indication: BENIGN PROSTATIC HYPERPLASIA
     Dosage: 5MG PO DAILY
     Route: 048
     Dates: start: 20110627, end: 20110722

REACTIONS (2)
  - HAEMATURIA [None]
  - DIZZINESS [None]
